FAERS Safety Report 7731899-9 (Version None)
Quarter: 2011Q3

REPORT INFORMATION
  Report Type: 
  Country: None (occurrence: None)
  Receive Date: 20110906
  Receipt Date: 20110713
  Transmission Date: 20111222
  Serious: No
  Sender: FDA-Public Use
  Company Number: US-AMGEN-USASP2011035579

PATIENT
  Age: 68 Year
  Sex: Male

DRUGS (11)
  1. CLONAPINE [Concomitant]
  2. CENTRUM                            /00554501/ [Concomitant]
  3. SPIRIVA [Concomitant]
  4. CALCIUM CARBONATE [Concomitant]
  5. PROAIR HFA [Concomitant]
  6. DEVEROL MIT THIAZID [Concomitant]
  7. FISH OIL [Concomitant]
  8. ZOMETA [Concomitant]
  9. PROLIA [Suspect]
     Indication: OSTEOPOROSIS
     Dosage: 60 MG, UNK
  10. VITAMIN D [Concomitant]
  11. TRAMADOL HYDROCHLORIDE [Concomitant]

REACTIONS (1)
  - BLOOD CHOLESTEROL INCREASED [None]
